FAERS Safety Report 17579573 (Version 4)
Quarter: 2021Q3

REPORT INFORMATION
  Report Type: Report from Study
  Country: CO (occurrence: CO)
  Receive Date: 20200325
  Receipt Date: 20210728
  Transmission Date: 20211014
  Serious: Yes (Other)
  Sender: FDA-Public Use
  Company Number: NVSC2020CO082333

PATIENT
  Age: 50 Year
  Sex: Male
  Weight: 74 kg

DRUGS (2)
  1. TASIGNA [Suspect]
     Active Substance: NILOTINIB
     Dosage: 600 MG, QD
     Route: 048
  2. TASIGNA [Suspect]
     Active Substance: NILOTINIB
     Indication: CHRONIC MYELOID LEUKAEMIA
     Dosage: 600 MG, QD (300 MG IN MORNING AND 300 MG IN THE NIGHT)
     Route: 048
     Dates: start: 2013

REACTIONS (9)
  - Toothache [Unknown]
  - Fear [Unknown]
  - Cytogenetic analysis abnormal [Unknown]
  - Headache [Unknown]
  - Loose tooth [Unknown]
  - Product dose omission issue [Unknown]
  - Chronic myeloid leukaemia recurrent [Unknown]
  - Tooth loss [Unknown]
  - Inappropriate schedule of product administration [Unknown]

NARRATIVE: CASE EVENT DATE: 20191130
